FAERS Safety Report 9629216 (Version 1)
Quarter: 2013Q4

REPORT INFORMATION
  Report Type: Spontaneous
  Country: US (occurrence: US)
  Receive Date: 20131017
  Receipt Date: 20131017
  Transmission Date: 20140711
  Serious: Yes (Other)
  Sender: FDA-Public Use
  Company Number: US-ELI_LILLY_AND_COMPANY-US201310004220

PATIENT
  Sex: Female

DRUGS (7)
  1. ADCIRCA [Suspect]
     Indication: PULMONARY ARTERIAL HYPERTENSION
     Dosage: 20 MG, UNK
  2. ADCIRCA [Suspect]
     Dosage: 40 MG, QOD
  3. ALDACTONE [Concomitant]
  4. PREDNISONE [Concomitant]
  5. CARDIZEM                           /00489701/ [Concomitant]
  6. VITAMIN D [Concomitant]
  7. PRILOSEC [Concomitant]

REACTIONS (2)
  - Blindness transient [Recovered/Resolved]
  - Sarcoidosis [Unknown]
